FAERS Safety Report 7865066-5 (Version None)
Quarter: 2011Q4

REPORT INFORMATION
  Report Type: 
  Country: None (occurrence: None)
  Receive Date: 20111028
  Receipt Date: 20101008
  Transmission Date: 20120403
  Serious: No
  Sender: FDA-Public Use
  Company Number: US-GLAXOSMITHKLINE-A0885647A

PATIENT
  Age: 67 Year
  Sex: Male
  Weight: 91.4 kg

DRUGS (1)
  1. ADVAIR DISKUS 100/50 [Suspect]
     Indication: ASTHMA
     Dosage: 1PUFF TWICE PER DAY
     Route: 055
     Dates: start: 20100927

REACTIONS (7)
  - CONFUSIONAL STATE [None]
  - DYSGEUSIA [None]
  - DISTURBANCE IN ATTENTION [None]
  - FEELING DRUNK [None]
  - DISORIENTATION [None]
  - BALANCE DISORDER [None]
  - BLOOD GLUCOSE ABNORMAL [None]
